FAERS Safety Report 14903874 (Version 1)
Quarter: 2018Q2

REPORT INFORMATION
  Report Type: Report from Study
  Country: US (occurrence: US)
  Receive Date: 20180516
  Receipt Date: 20180516
  Transmission Date: 20180711
  Serious: Yes (Hospitalization)
  Sender: FDA-Public Use
  Company Number: US-GILEAD-2018-0336846

PATIENT
  Age: 11 Year
  Sex: Female

DRUGS (10)
  1. AZTREONAM LYSINE [Suspect]
     Active Substance: AZTREONAM LYSINE
     Indication: CYSTIC FIBROSIS
     Dosage: 75 MG, TID
     Route: 055
     Dates: start: 20141024
  2. IBUPROFEN. [Concomitant]
     Active Substance: IBUPROFEN
  3. ERGOCALCIFEROL. [Concomitant]
     Active Substance: ERGOCALCIFEROL
  4. PULMOZYME [Concomitant]
     Active Substance: DORNASE ALFA
     Dosage: 2.5 MG VIA NEBULIZER BID
     Dates: start: 20141023
  5. AQUADEKS                           /07679501/ [Concomitant]
     Active Substance: MINERALS\VITAMINS
     Dosage: 2 ML PO QD
     Dates: start: 20140515
  6. PZ 4 [Concomitant]
  7. TOBI [Concomitant]
     Active Substance: TOBRAMYCIN
     Dosage: 112 MG VIA NEBULIER BID QOM
     Dates: start: 20130724
  8. SODIUM CHLORIDE. [Concomitant]
     Active Substance: SODIUM CHLORIDE
     Dosage: 4 ML VIA NEBULIZER BID
     Dates: start: 20130622
  9. POLYETHYLENE GLYCOL [Concomitant]
     Active Substance: POLYETHYLENE GLYCOLS
  10. CREON [Concomitant]
     Active Substance: PANCRELIPASE AMYLASE\PANCRELIPASE LIPASE\PANCRELIPASE PROTEASE
     Dosage: 72,000 UNITS PO BEFORE EACH MEAL AND SNACK
     Dates: start: 20130622

REACTIONS (1)
  - Staphylococcal infection [Not Recovered/Not Resolved]
